FAERS Safety Report 8552529-2 (Version None)
Quarter: 2012Q3

REPORT INFORMATION
  Report Type: 
  Country: None (occurrence: None)
  Receive Date: 20120731
  Receipt Date: 20120723
  Transmission Date: 20120928
  Serious: Yes (Other)
  Sender: FDA-Public Use
  Company Number: BR-JNJFOC-20120713327

PATIENT
  Age: 7 Year
  Sex: Male

DRUGS (2)
  1. ABILIFY [Suspect]
     Indication: PRODUCT USED FOR UNKNOWN INDICATION
     Dosage: 15 MG 0.5 A DAY
     Route: 048
     Dates: start: 20120201
  2. CONCERTA [Suspect]
     Indication: PRODUCT USED FOR UNKNOWN INDICATION
     Route: 048
     Dates: start: 20120201

REACTIONS (2)
  - WEIGHT INCREASED [None]
  - SKIN DISCOLOURATION [None]
